FAERS Safety Report 5170482-9 (Version None)
Quarter: 2006Q4

REPORT INFORMATION
  Report Type: 
  Country: None (occurrence: None)
  Receive Date: 20061204
  Receipt Date: 20061122
  Transmission Date: 20070319
  Serious: Yes (Hospitalization, Other)
  Sender: FDA-Public Use
  Company Number: 2006144417

PATIENT
  Age: 76 Year
  Sex: Male

DRUGS (2)
  1. METHYLPREDNISOLONE SODIUM SUCCINATE [Suspect]
     Indication: INTERSTITIAL LUNG DISEASE
     Dosage: 1 GRAM (1 IN 1 D)
     Dates: start: 20050101
  2. CYCLOSPORINE [Suspect]
     Indication: INTERSTITIAL LUNG DISEASE
     Dosage: 150 MG (1 IN 1 D)
     Dates: start: 20050101, end: 20050101

REACTIONS (4)
  - BACTERIAL INFECTION [None]
  - DEVICE RELATED INFECTION [None]
  - SPLENIC ABSCESS [None]
  - STAPHYLOCOCCAL BACTERAEMIA [None]
